FAERS Safety Report 9516523 (Version 2)
Quarter: 2013Q3

REPORT INFORMATION
  Report Type: Spontaneous
  Country: US (occurrence: US)
  Receive Date: 20130911
  Receipt Date: 20130920
  Transmission Date: 20140515
  Serious: Yes (Death, Other)
  Sender: FDA-Public Use
  Company Number: US-GILEAD-2013-0083082

PATIENT
  Sex: Female

DRUGS (22)
  1. CAYSTON [Suspect]
     Indication: CYSTIC FIBROSIS LUNG
     Dosage: 75 MG, TID
     Route: 055
     Dates: start: 20110221
  2. CAYSTON [Suspect]
     Indication: PSEUDOMONAS INFECTION
  3. ADVAIR [Concomitant]
     Dosage: 1 DF, BID
     Route: 055
     Dates: start: 20110611
  4. ALBUTEROL HFA [Concomitant]
     Dosage: 90 ?G, BID
     Route: 055
     Dates: start: 20120904
  5. ALBUTEROL SULFATE [Concomitant]
     Dosage: 1 DF, PRN 4 TIES DAILY
     Route: 055
     Dates: start: 20110221
  6. AZITHROMYCIN [Concomitant]
     Dosage: 250 MG, MO, WED, FRI
     Route: 048
     Dates: start: 20110221
  7. CALCIUM 600 + D [Concomitant]
     Dosage: 400 MG, UNK
     Route: 048
     Dates: start: 20110221
  8. CREON [Concomitant]
     Dosage: 24000 IU, 3 CAP WITH MEALS, 2 CAP WITH SNACKS
     Route: 048
     Dates: start: 20111114
  9. CYPROHEPTADINE [Concomitant]
     Dosage: 4 MG, TID
     Route: 048
     Dates: start: 20110913
  10. DIFLUCAN [Concomitant]
     Dosage: 100 MG, QD
     Route: 048
     Dates: start: 20121211
  11. MEPHYTON [Concomitant]
     Dosage: 5 MG, QD
     Route: 048
     Dates: start: 20120105
  12. MIRTAZAPINE [Concomitant]
     Dosage: 15 MG, QD
     Route: 048
     Dates: start: 20120905
  13. NASONEX [Concomitant]
     Dosage: 1 DF, UNK
     Route: 045
     Dates: start: 20110221
  14. NOVOLOG [Concomitant]
     Dosage: 100 IU, UNK
     Dates: start: 20110221
  15. PANTOPRAZOLE SODIUM [Concomitant]
     Dosage: 40 MG, QD
     Route: 048
     Dates: start: 20120905
  16. PULMOZYME [Concomitant]
     Dosage: 1 MG, QD
     Route: 055
     Dates: start: 20110221
  17. SERTRALINE HCL [Concomitant]
     Dosage: 50 MG, QD
     Route: 048
     Dates: start: 20110221
  18. SODIUM CHLORIDE [Concomitant]
     Dosage: 1 DF, BID
     Route: 055
     Dates: start: 20110221
  19. SULFAMETHOXAZOLE AND TRIMETHOPRIM [Concomitant]
     Dosage: 1 DF, BID
     Route: 048
     Dates: start: 20121009
  20. TOBI                               /00304201/ [Concomitant]
     Dosage: 300 MG, BID
     Dates: start: 20130109
  21. VALTREX [Concomitant]
     Dosage: 500 MG, QD
     Route: 048
     Dates: start: 20110221
  22. ZOLPIDEM TARTRATE [Concomitant]
     Dosage: 10 MG, QHS PRN
     Route: 048
     Dates: start: 20110221

REACTIONS (2)
  - Respiratory failure [Fatal]
  - Cystic fibrosis [Fatal]
